FAERS Safety Report 13023903 (Version 2)
Quarter: 2016Q4

REPORT INFORMATION
  Report Type: Spontaneous
  Country: DE (occurrence: DE)
  Receive Date: 20161213
  Receipt Date: 20161220
  Transmission Date: 20170207
  Serious: Yes (Other)
  Sender: FDA-Public Use
  Company Number: DE-JNJFOC-20161207609

PATIENT
  Age: 5 Decade
  Sex: Male

DRUGS (1)
  1. STELARA [Suspect]
     Active Substance: USTEKINUMAB
     Indication: PSORIASIS
     Route: 058
     Dates: start: 20151010

REACTIONS (4)
  - Fatigue [Recovering/Resolving]
  - Psoriasis [Unknown]
  - Drug effect decreased [Unknown]
  - Asthma [Unknown]

NARRATIVE: CASE EVENT DATE: 2016
